FAERS Safety Report 24021239 (Version 2)
Quarter: 2024Q3

REPORT INFORMATION
  Report Type: Spontaneous
  Country: DE (occurrence: DE)
  Receive Date: 20240627
  Receipt Date: 20240704
  Transmission Date: 20241016
  Serious: Yes (Life-Threatening, Hospitalization)
  Sender: BOEHRINGER INGELHEIM
  Company Number: DE-BoehringerIngelheim-2024-BI-034100

PATIENT
  Age: 61 Year
  Sex: Male
  Weight: 105 kg

DRUGS (14)
  1. JARDIANCE [Suspect]
     Active Substance: EMPAGLIFLOZIN
     Indication: Type 2 diabetes mellitus
     Route: 048
  2. JARDIANCE [Suspect]
     Active Substance: EMPAGLIFLOZIN
     Indication: Cardiac failure
  3. PANTOPRAZOLE SODIUM [Concomitant]
     Active Substance: PANTOPRAZOLE SODIUM
     Indication: Product used for unknown indication
  4. ALLOPURINOL [Concomitant]
     Active Substance: ALLOPURINOL
     Indication: Product used for unknown indication
  5. PREGABALIN [Concomitant]
     Active Substance: PREGABALIN
     Indication: Product used for unknown indication
  6. PREGABALIN [Concomitant]
     Active Substance: PREGABALIN
  7. Oxycodon/Naloxan 10/5 mg [Concomitant]
     Indication: Product used for unknown indication
  8. Oxycodon 5 mg [Concomitant]
     Indication: Product used for unknown indication
  9. L-Thyroxin 137 mcg [Concomitant]
     Indication: Product used for unknown indication
  10. ASPIRIN [Concomitant]
     Active Substance: ASPIRIN
     Indication: Product used for unknown indication
  11. ENTRESTO [Concomitant]
     Active Substance: SACUBITRIL\VALSARTAN
     Indication: Product used for unknown indication
     Dosage: 24/26 MG
  12. BISOPROLOL [Concomitant]
     Active Substance: BISOPROLOL\BISOPROLOL FUMARATE
     Indication: Product used for unknown indication
  13. Eplerenon 25 mg [Concomitant]
     Indication: Product used for unknown indication
  14. Tirzepatid 5 mg [Concomitant]
     Indication: Product used for unknown indication
     Dosage: ON WEDNESDAYS

REACTIONS (9)
  - Ketoacidosis [Recovered/Resolved]
  - Sepsis [Recovered/Resolved]
  - Hepatic steatosis [Unknown]
  - Cholelithiasis [Unknown]
  - Splenomegaly [Unknown]
  - Renal impairment [Unknown]
  - Hypotension [Unknown]
  - Bradycardia [Unknown]
  - Diarrhoea [Unknown]
